FAERS Safety Report 8764271 (Version 2)
Quarter: 2014Q2

REPORT INFORMATION
  Report Type: Spontaneous
  Country: AT (occurrence: AT)
  Receive Date: 20120831
  Receipt Date: 20140501
  Transmission Date: 20141212
  Serious: Yes (Life-Threatening, Other)
  Sender: FDA-Public Use
  Company Number: AT-ROXANE LABORATORIES, INC.-2012-RO-01762RO

PATIENT
  Age: 22 Year
  Sex: Female
  Weight: 46 kg

DRUGS (1)
  1. FUROSEMIDE [Suspect]
     Indication: OFF LABEL USE
     Dosage: 250 MG
     Route: 065

REACTIONS (6)
  - Hypokalaemia [Recovered/Resolved]
  - Rhabdomyolysis [Unknown]
  - Hyponatraemia [Recovered/Resolved]
  - Metabolic alkalosis [Recovered/Resolved]
  - Renal failure [Unknown]
  - Blood creatine phosphokinase increased [Recovered/Resolved]
